FAERS Safety Report 6974629-0 (Version None)
Quarter: 2010Q3

REPORT INFORMATION
  Report Type: 
  Country: None (occurrence: None)
  Receive Date: 20100909
  Receipt Date: 20081201
  Transmission Date: 20110219
  Serious: No
  Sender: FDA-Public Use
  Company Number: US-WYE-H07064908

PATIENT

DRUGS (2)
  1. PRISTIQ [Suspect]
     Dosage: UNKNOWN
     Route: 048
  2. TREXIMET [Suspect]
     Indication: MIGRAINE
     Dosage: UNKNOWN AS NEEDED

REACTIONS (1)
  - PALPITATIONS [None]
